FAERS Safety Report 24023342 (Version 3)
Quarter: 2024Q3

REPORT INFORMATION
  Report Type: Report from Study
  Country: US (occurrence: US)
  Receive Date: 20240627
  Receipt Date: 20240710
  Transmission Date: 20241016
  Serious: No
  Sender: ROCHE
  Company Number: US-ROCHE-3564105

PATIENT
  Age: 57 Year
  Sex: Female
  Weight: 66.7 kg

DRUGS (6)
  1. FARICIMAB [Suspect]
     Active Substance: FARICIMAB
     Indication: Diabetic retinal oedema
     Dosage: 06/SEP/2022 RECEIVED MOST RECENT DOSE OF FARICIMAB
     Route: 050
  2. ATORVASTATIN [Concomitant]
     Active Substance: ATORVASTATIN
     Route: 048
     Dates: start: 2022
  3. METFORMIN HYDROCHLORIDE [Concomitant]
     Active Substance: METFORMIN HYDROCHLORIDE
     Route: 048
     Dates: start: 2019
  4. OZEMPIC [Concomitant]
     Active Substance: SEMAGLUTIDE
     Route: 058
     Dates: start: 2023
  5. JARDIANCE [Concomitant]
     Active Substance: EMPAGLIFLOZIN
     Route: 048
     Dates: start: 2020
  6. CLARITIN [Concomitant]
     Active Substance: LORATADINE
     Route: 048
     Dates: start: 2013

REACTIONS (1)
  - Visual impairment [Recovered/Resolved]

NARRATIVE: CASE EVENT DATE: 20231024
